FAERS Safety Report 6278005-8 (Version None)
Quarter: 2009Q3

REPORT INFORMATION
  Report Type: 
  Country: None (occurrence: None)
  Receive Date: 20090722
  Receipt Date: 20090608
  Transmission Date: 20100115
  Serious: Yes (Hospitalization, Other)
  Sender: FDA-Public Use
  Company Number: PHHY2009JP17512

PATIENT
  Sex: Female
  Weight: 36 kg

DRUGS (28)
  1. VOLTAREN [Suspect]
     Indication: ARTHRALGIA
     Dosage: 25 MG, 20 DF/MONTH
     Route: 048
     Dates: start: 20080209, end: 20080818
  2. VOLTAREN [Suspect]
     Indication: PAIN
     Dosage: 10 DF, UNK
     Dates: end: 20080818
  3. TAKEPRON [Concomitant]
     Indication: GASTRITIS
     Dosage: 15 MG/DAY
     Route: 048
     Dates: start: 20080331, end: 20080728
  4. XYLOCAINE [Concomitant]
     Indication: ARTHRALGIA
     Dosage: 5 ML, UNK
     Dates: start: 20080122, end: 20080602
  5. BONALON [Concomitant]
     Indication: ARTHRALGIA
     Dosage: 35 MG, UNK
     Route: 048
     Dates: start: 20080122, end: 20080407
  6. NEUROTROPIN [Concomitant]
     Indication: ARTHRALGIA
     Dosage: 4 DF, UNK
     Route: 048
     Dates: start: 20080122, end: 20080226
  7. TOUGHMAC E [Concomitant]
     Indication: ARTHRALGIA
     Dosage: 2 DF, UNK
     Route: 048
     Dates: start: 20080122, end: 20080414
  8. ARTZ [Concomitant]
     Indication: ARTHRALGIA
     Dosage: UNK
     Dates: start: 20080122, end: 20080331
  9. DECADRON [Concomitant]
     Indication: ARTHRALGIA
     Dosage: UNK
     Dates: start: 20080122, end: 20080602
  10. GASTER D [Concomitant]
     Indication: GASTRITIS
     Dosage: 40 MG, UNK
     Route: 048
     Dates: start: 20080125
  11. GASTER D [Concomitant]
     Dosage: 20 MG, UNK
     Route: 048
  12. CRAVIT [Concomitant]
     Indication: PYREXIA
     Dosage: 300 MG, UNK
     Route: 048
     Dates: start: 20080209, end: 20080211
  13. BLOPRESS [Concomitant]
     Dosage: 8 MG, UNK
     Route: 048
     Dates: end: 20080722
  14. SOLDEM 3A [Concomitant]
     Indication: DEHYDRATION
     Dosage: 500 ML, UNK
     Route: 042
     Dates: start: 20080205, end: 20080216
  15. FOIPAN [Concomitant]
     Indication: PANCREATITIS CHRONIC
     Dosage: 600 MG, UNK
     Route: 048
     Dates: start: 20080214, end: 20080728
  16. NELBON [Concomitant]
     Indication: INSOMNIA
     Dosage: 5 MG, UNK
     Route: 048
     Dates: start: 20080214, end: 20080728
  17. ALOSENN [Concomitant]
     Indication: CONSTIPATION
     Dosage: 1 G, UNK
     Route: 048
     Dates: start: 20080214, end: 20080217
  18. CYANOCOBALAMIN [Concomitant]
     Indication: ANAEMIA
     Dosage: 500 UG, UNK
     Route: 030
     Dates: start: 20080301, end: 20080315
  19. URINORM [Concomitant]
     Indication: HYPERURICAEMIA
     Dosage: 100 MG, UNK
     Route: 048
     Dates: start: 20080310
  20. URINORM [Concomitant]
     Dosage: 100 MG, UNK
     Route: 048
  21. URALYT-U [Concomitant]
     Indication: HYPERURICAEMIA
     Dosage: 2 G, UNK
     Route: 048
     Dates: start: 20080310
  22. URALYT-U [Concomitant]
     Dosage: 2 G, UNK
     Route: 048
  23. FERRUM [Concomitant]
     Indication: ANAEMIA
     Dosage: 1 DF, UNK
     Route: 048
     Dates: start: 20080331, end: 20080728
  24. NAUZELIN [Concomitant]
     Indication: GASTRITIS
     Dosage: 30 MG, UNK
     Route: 048
     Dates: start: 20080331, end: 20080728
  25. NORVASC [Concomitant]
     Indication: HYPERTENSION
     Dosage: 5 MG, UNK
     Route: 048
     Dates: start: 20080421, end: 20080728
  26. LAC B [Concomitant]
     Indication: DIARRHOEA
     Dosage: 3 G, UNK
     Route: 048
     Dates: start: 20080428, end: 20080728
  27. ADSORBIN [Concomitant]
     Indication: DIARRHOEA
     Dosage: 1.5 G, UNK
     Route: 048
     Dates: start: 20080602, end: 20080609
  28. ALBUMIN TANNATE [Concomitant]
     Indication: DIARRHOEA
     Dosage: 1.5 G, UNK
     Route: 048
     Dates: start: 20080602, end: 20080609

REACTIONS (10)
  - ARTHRALGIA [None]
  - BIOPSY [None]
  - CHONDROCALCINOSIS PYROPHOSPHATE [None]
  - COLITIS COLLAGENOUS [None]
  - DECREASED APPETITE [None]
  - DIARRHOEA [None]
  - GASTRITIS [None]
  - HAEMOGLOBIN DECREASED [None]
  - PAIN IN EXTREMITY [None]
  - WEIGHT DECREASED [None]
